FAERS Safety Report 9071143 (Version 1)
Quarter: 2013Q1

REPORT INFORMATION
  Report Type: Report from Study
  Country: US (occurrence: US)
  Receive Date: 20130129
  Receipt Date: 20130129
  Transmission Date: 20140127
  Serious: No
  Sender: FDA-Public Use
  Company Number: US-ABBOTT-12P-163-0930031-00

PATIENT
  Age: 51 Year
  Sex: Female

DRUGS (5)
  1. HUMIRA 40 MG/0.8 ML PEN [Suspect]
     Indication: PRODUCT USED FOR UNKNOWN INDICATION
     Dates: start: 20120330
  2. HYDROCHLOROTHIAZIDE [Concomitant]
     Indication: HYPERTENSION
     Dosage: 1 DOSAGE FORM
     Route: 048
  3. POTASSIUM [Concomitant]
     Indication: MINERAL SUPPLEMENTATION
     Route: 048
  4. METHOTREXATE [Concomitant]
     Indication: ARTHRITIS
     Dosage: 6 X 2.5MG TABS WEEKLY
     Route: 048
  5. FOLIC ACID [Concomitant]
     Indication: VITAMIN SUPPLEMENTATION
     Dosage: 1 TAB DAILY
     Route: 048

REACTIONS (4)
  - Incorrect dose administered [Unknown]
  - Injection site pain [Recovered/Resolved]
  - Cough [Unknown]
  - Injection site pain [Recovered/Resolved]
